FAERS Safety Report 16895190 (Version 1)
Quarter: 2019Q4

REPORT INFORMATION
  Report Type: Spontaneous
  Country: US (occurrence: US)
  Receive Date: 20191007
  Receipt Date: 20191007
  Transmission Date: 20200122
  Serious: Yes (Congenital Anomaly)
  Sender: FDA-Public Use
  Company Number: None

PATIENT
  Age: 36 Year
  Sex: Female
  Weight: 69.75 kg

DRUGS (1)
  1. ZOFRAN [Suspect]
     Active Substance: ONDANSETRON HYDROCHLORIDE
     Indication: HYPEREMESIS GRAVIDARUM
     Dates: start: 20190101, end: 20190531

REACTIONS (4)
  - Maternal exposure during pregnancy [None]
  - Cleft lip and palate [None]
  - Foetal exposure during pregnancy [None]
  - Congenital anomaly [None]

NARRATIVE: CASE EVENT DATE: 20190401
